FAERS Safety Report 5974818-8 (Version None)
Quarter: 2008Q4

REPORT INFORMATION
  Report Type: 
  Country: None (occurrence: None)
  Receive Date: 20081201
  Receipt Date: 20081127
  Transmission Date: 20090506
  Serious: Yes (Death, Hospitalization)
  Sender: FDA-Public Use
  Company Number: GB-PFIZER INC-2008100413

PATIENT
  Age: 56 Year
  Sex: Female
  Weight: 65 kg

DRUGS (14)
  1. DOXORUBICIN HCL [Suspect]
     Indication: BREAST CANCER
     Dates: start: 20081028
  2. CYCLOPHOSPHAMIDE [Suspect]
     Indication: BREAST CANCER
     Dates: start: 20081028
  3. DOCETAXEL [Suspect]
     Indication: BREAST CANCER
     Dates: start: 20081028
  4. BENZYDAMINE [Concomitant]
  5. ALL OTHER THERAPEUTIC PRODUCTS [Concomitant]
  6. DOMPERIDONE [Concomitant]
  7. GENTAMICIN [Concomitant]
  8. GRANISETRON [Concomitant]
  9. NYSTATIN [Concomitant]
  10. OMEPRAZOLE [Concomitant]
  11. ACETAMINOPHEN [Concomitant]
  12. PEGFILGRASTIM [Concomitant]
  13. PREDNISOLONE [Concomitant]
  14. TAZOCIN [Concomitant]

REACTIONS (1)
  - INTERSTITIAL LUNG DISEASE [None]
